FAERS Safety Report 5835580-2 (Version None)
Quarter: 2008Q3

REPORT INFORMATION
  Report Type: 
  Country: None (occurrence: None)
  Receive Date: 20080806
  Receipt Date: 20080806
  Transmission Date: 20090109
  Serious: Yes (Other)
  Sender: FDA-Public Use
  Company Number: A0741328A

PATIENT
  Age: 49 Year
  Sex: Female
  Weight: 78.2 kg

DRUGS (5)
  1. ALLI [Suspect]
     Indication: WEIGHT LOSS DIET
     Route: 048
     Dates: start: 20080701
  2. HEPARIN [Concomitant]
  3. OXYMORPHONE HCL [Concomitant]
  4. PERCOCET [Concomitant]
  5. TYLENOL EXTRA STRENGTH [Concomitant]
     Dosage: 2CAP PER DAY

REACTIONS (7)
  - ABDOMINAL PAIN UPPER [None]
  - ASTHENIA [None]
  - FATIGUE [None]
  - HAEMATOCHEZIA [None]
  - MALAISE [None]
  - PHARMACEUTICAL PRODUCT COMPLAINT [None]
  - RECTAL HAEMORRHAGE [None]
